FAERS Safety Report 14345697 (Version 2)
Quarter: 2018Q2

REPORT INFORMATION
  Report Type: Spontaneous
  Country: ES (occurrence: ES)
  Receive Date: 20180103
  Receipt Date: 20180524
  Transmission Date: 20180711
  Serious: Yes (Other)
  Sender: FDA-Public Use
  Company Number: ES-BAUSCH-BL-2017-035473

PATIENT
  Age: 84 Year
  Sex: Female

DRUGS (3)
  1. ACICLOVIR [Suspect]
     Active Substance: ACYCLOVIR
     Indication: HERPES SIMPLEX
     Route: 042
     Dates: start: 2015
  2. CIDOFOVIR. [Concomitant]
     Active Substance: CIDOFOVIR
     Indication: HERPES SIMPLEX
     Dosage: APPLIED DAILY
  3. ACICLOVIR [Suspect]
     Active Substance: ACYCLOVIR
     Dosage: 10 MG/KG EVERY 8 HOURS
     Route: 042
     Dates: start: 2017

REACTIONS (1)
  - Drug resistance [Unknown]
